FAERS Safety Report 4638956-4 (Version None)
Quarter: 2005Q2

REPORT INFORMATION
  Report Type: 
  Country: None (occurrence: None)
  Receive Date: 20050414
  Receipt Date: 20050414
  Transmission Date: 20051028
  Serious: Yes (Other)
  Sender: FDA-Public Use
  Company Number: None

PATIENT
  Age: 38 Year
  Sex: Female
  Weight: 80.7403 kg

DRUGS (2)
  1. CLORAZEPATE DIPOTASSIUM [Suspect]
     Indication: PANIC DISORDER
     Dosage: ONE FIVE/DAY    MID 1990'S
  2. CLORAZEPATE DIPOTASSIUM [Suspect]
     Indication: POST-TRAUMATIC STRESS DISORDER
     Dosage: ONE FIVE/DAY    MID 1990'S

REACTIONS (3)
  - ANXIETY [None]
  - PHARMACEUTICAL PRODUCT COMPLAINT [None]
  - THERAPEUTIC RESPONSE UNEXPECTED WITH DRUG SUBSTITUTION [None]
